FAERS Safety Report 25036275 (Version 1)
Quarter: 2025Q1

REPORT INFORMATION
  Report Type: Report from Study
  Country: US (occurrence: US)
  Receive Date: 20250304
  Receipt Date: 20250304
  Transmission Date: 20250409
  Serious: Yes (Other)
  Sender: MYLAN
  Company Number: US-MYLANLABS-2025M1017368

PATIENT
  Age: 47 Year
  Sex: Female

DRUGS (10)
  1. OCTREOTIDE [Suspect]
     Active Substance: OCTREOTIDE
     Indication: Neuroendocrine tumour
  2. OCTREOTIDE [Suspect]
     Active Substance: OCTREOTIDE
     Indication: Metastasis
  3. LAROTRECTINIB [Concomitant]
     Active Substance: LAROTRECTINIB
     Indication: Neuroendocrine tumour
     Dosage: 100 MILLIGRAM, BID
  4. LAROTRECTINIB [Concomitant]
     Active Substance: LAROTRECTINIB
     Indication: Metastasis
     Dosage: 100 MILLIGRAM, QD (FOR 1 WEEK)
  5. LEUCOVORIN [Concomitant]
     Active Substance: LEUCOVORIN\LEUCOVORIN CALCIUM
     Indication: Neuroendocrine tumour
  6. LEUCOVORIN [Concomitant]
     Active Substance: LEUCOVORIN\LEUCOVORIN CALCIUM
     Indication: Metastasis
  7. FLUOROURACIL [Concomitant]
     Active Substance: FLUOROURACIL
     Indication: Neuroendocrine tumour
  8. FLUOROURACIL [Concomitant]
     Active Substance: FLUOROURACIL
     Indication: Metastasis
  9. OXALIPLATIN [Concomitant]
     Active Substance: OXALIPLATIN
     Indication: Neuroendocrine tumour
  10. OXALIPLATIN [Concomitant]
     Active Substance: OXALIPLATIN
     Indication: Metastasis

REACTIONS (3)
  - Drug ineffective for unapproved indication [Unknown]
  - Disease progression [Unknown]
  - Off label use [Unknown]
